FAERS Safety Report 14121218 (Version 1)
Quarter: 2017Q4

REPORT INFORMATION
  Report Type: Spontaneous
  Country: JP (occurrence: JP)
  Receive Date: 20171024
  Receipt Date: 20171024
  Transmission Date: 20180321
  Serious: Yes (Other)
  Sender: FDA-Public Use
  Company Number: JP-PFIZER INC-2017450553

PATIENT

DRUGS (1)
  1. CORTRIL [Suspect]
     Active Substance: HYDROCORTISONE
     Indication: RENAL CELL CARCINOMA
     Dosage: 15 MG, 2X/DAY
     Route: 048

REACTIONS (3)
  - Adrenal insufficiency [Unknown]
  - Dysphagia [Unknown]
  - Asthenia [Unknown]
